FAERS Safety Report 7633684-5 (Version None)
Quarter: 2011Q3

REPORT INFORMATION
  Report Type: 
  Country: None (occurrence: None)
  Receive Date: 20110701
  Receipt Date: 20110209
  Transmission Date: 20111222
  Serious: Yes (Other)
  Sender: FDA-Public Use
  Company Number: 7041638

PATIENT
  Age: 58 Year
  Sex: Female
  Weight: 68 kg

DRUGS (17)
  1. KLONOPIN [Concomitant]
  2. LISINOPRIL [Concomitant]
  3. HYDROCODONE (HYDROCODONE) [Concomitant]
  4. TRAVATAN [Concomitant]
  5. VITAMIN D [Concomitant]
  6. METAMUCIL (PLANTAGO OVATA) [Concomitant]
  7. OBETROL [Concomitant]
  8. AZOPL (BRINZOLAMIDE) [Concomitant]
  9. STOOL SOFTENER (DOCUSATE SODIUM) [Concomitant]
  10. FLUOXETINE HYDROCHLORIDE [Concomitant]
  11. OPANA ER (ALL OTHER THERAPEUTIC PRODUCTS) [Concomitant]
  12. REBIF [Suspect]
     Indication: MULTIPLE SCLEROSIS
     Dosage: 44 MCG, 3 IN 1 WK, SUBCUTANEOUS ; 3 IN 1 WK ; 22 MCG, 3 IN 1 WK, SUBCUTANEOUS
     Route: 058
     Dates: start: 20101001
  13. REBIF [Suspect]
     Indication: MULTIPLE SCLEROSIS
     Dosage: 44 MCG, 3 IN 1 WK, SUBCUTANEOUS ; 3 IN 1 WK ; 22 MCG, 3 IN 1 WK, SUBCUTANEOUS
     Route: 058
     Dates: start: 20080501, end: 20100101
  14. REBIF [Suspect]
     Indication: MULTIPLE SCLEROSIS
     Dosage: 44 MCG, 3 IN 1 WK, SUBCUTANEOUS ; 3 IN 1 WK ; 22 MCG, 3 IN 1 WK, SUBCUTANEOUS
     Route: 058
     Dates: start: 20110308
  15. LEVOTHYROXINE SODIUM [Concomitant]
  16. MIRALAX [Concomitant]
  17. BRIMONIDINE TARTRATE [Concomitant]

REACTIONS (1)
  - HYPERSENSITIVITY [None]
